FAERS Safety Report 7372886-2 (Version None)
Quarter: 2011Q1

REPORT INFORMATION
  Report Type: 
  Country: None (occurrence: None)
  Receive Date: 20110324
  Receipt Date: 20110318
  Transmission Date: 20110831
  Serious: Yes (Hospitalization, Disabling)
  Sender: FDA-Public Use
  Company Number: CN-PFIZER INC-2011059500

PATIENT
  Age: 48 Year
  Sex: Female

DRUGS (1)
  1. DOXORUBICIN HCL [Suspect]
     Indication: OVARIAN CANCER
     Dosage: 79 MG, SINGLE
     Route: 042
     Dates: start: 20081225

REACTIONS (7)
  - INFUSION SITE EXTRAVASATION [None]
  - SCAR [None]
  - INFUSION SITE INFECTION [None]
  - ARTHROPATHY [None]
  - SKIN ULCER [None]
  - EXTRAVASATION [None]
  - SKIN LESION [None]
